FAERS Safety Report 10312503 (Version 2)
Quarter: 2014Q3

REPORT INFORMATION
  Report Type: Spontaneous
  Country: US (occurrence: US)
  Receive Date: 20140718
  Receipt Date: 20140722
  Transmission Date: 20150326
  Serious: No
  Sender: FDA-Public Use
  Company Number: US-009507513-1407USA006940

PATIENT
  Sex: Female

DRUGS (2)
  1. VENTOLIN [Concomitant]
     Active Substance: ALBUTEROL SULFATE
  2. DULERA [Suspect]
     Active Substance: FORMOTEROL FUMARATE DIHYDRATE\MOMETASONE FUROATE
     Indication: RESPIRATORY DISORDER
     Dosage: 2 PUFFS, BID
     Route: 055
     Dates: start: 201311

REACTIONS (7)
  - Dysphonia [Unknown]
  - Oral mucosal erythema [Not Recovered/Not Resolved]
  - Oral disorder [Not Recovered/Not Resolved]
  - Respiratory disorder [Unknown]
  - Product quality issue [Unknown]
  - Adverse event [Unknown]
  - Drug dose omission [Unknown]

NARRATIVE: CASE EVENT DATE: 2014
